FAERS Safety Report 6456291-9 (Version None)
Quarter: 2009Q4

REPORT INFORMATION
  Report Type: 
  Country: None (occurrence: None)
  Receive Date: 20091125
  Receipt Date: 20091103
  Transmission Date: 20100525
  Serious: No
  Sender: FDA-Public Use
  Company Number: US-ROCHE-667461

PATIENT
  Age: 2 Year
  Sex: Female

DRUGS (1)
  1. TAMIFLU [Suspect]
     Dosage: 2 DOSES
     Route: 048
     Dates: start: 20091101, end: 20091102

REACTIONS (2)
  - NO ADVERSE EVENT [None]
  - POOR QUALITY DRUG ADMINISTERED [None]
